FAERS Safety Report 17768794 (Version 1)
Quarter: 2020Q2

REPORT INFORMATION
  Report Type: Report from Study
  Country: US (occurrence: US)
  Receive Date: 20200512
  Receipt Date: 20200512
  Transmission Date: 20200714
  Serious: Yes (Hospitalization)
  Sender: FDA-Public Use
  Company Number: US-ARIAD-2017US009050

PATIENT
  Age: 53 Year
  Sex: Female

DRUGS (11)
  1. OXYCODONE HYDROCHLORIDE. [Concomitant]
     Active Substance: OXYCODONE HYDROCHLORIDE
     Dosage: UNK
     Route: 065
  2. SENNA                              /00142201/ [Concomitant]
     Active Substance: SENNA LEAF
     Dosage: UNK
     Route: 065
  3. PAXIL [Concomitant]
     Active Substance: PAROXETINE HYDROCHLORIDE
     Dosage: UNK
     Route: 065
  4. AMBIEN [Concomitant]
     Active Substance: ZOLPIDEM TARTRATE
     Dosage: UNK
     Route: 065
  5. JANUVIA [Concomitant]
     Active Substance: SITAGLIPTIN PHOSPHATE
     Dosage: UNK
     Route: 065
  6. AMLODIPINE BESYLATE/ATORVASTATIN CALCIUM [Concomitant]
     Active Substance: AMLODIPINE BESYLATE\ATORVASTATIN CALCIUM
     Dosage: UNK
     Route: 065
  7. METOPROLOL TARTRATE. [Concomitant]
     Active Substance: METOPROLOL TARTRATE
     Dosage: UNK
     Route: 065
  8. ATIVAN [Concomitant]
     Active Substance: LORAZEPAM
     Dosage: UNK
     Route: 065
  9. METFORMIN HCL [Concomitant]
     Active Substance: METFORMIN HYDROCHLORIDE
     Dosage: UNK
     Route: 065
  10. PONATINIB [Suspect]
     Active Substance: PONATINIB
     Indication: CHRONIC MYELOID LEUKAEMIA
     Dosage: 45 MG, QD
     Route: 048
     Dates: start: 201609
  11. PROTONIX                           /00661201/ [Concomitant]
     Active Substance: OMEPRAZOLE
     Dosage: UNK
     Route: 065

REACTIONS (11)
  - Peripheral swelling [Unknown]
  - Mental disorder [Unknown]
  - Pain in extremity [Unknown]
  - Lymphadenopathy [Unknown]
  - Blood count abnormal [Unknown]
  - Pancreatic mass [Unknown]
  - Liver function test increased [Unknown]
  - Pain [Unknown]
  - Fluid retention [Unknown]
  - Confusional state [Unknown]
  - Arthralgia [Unknown]

NARRATIVE: CASE EVENT DATE: 201808
